FAERS Safety Report 6236243-4 (Version None)
Quarter: 2009Q2

REPORT INFORMATION
  Report Type: 
  Country: None (occurrence: None)
  Receive Date: 20090616
  Receipt Date: 20090604
  Transmission Date: 20091009
  Serious: Yes (Death)
  Sender: FDA-Public Use
  Company Number: 2009AL000844

PATIENT
  Age: 32 Year
  Sex: Female
  Weight: 127.9144 kg

DRUGS (6)
  1. DIGOXIN [Suspect]
     Dosage: 0.125MG, DAILY, PO
     Route: 048
     Dates: start: 20070210, end: 20080210
  2. METOPROLOL SUCCINATE [Concomitant]
  3. FUROSEMIDE INTENSOL [Concomitant]
  4. TAMOXIFEN CITRATE [Concomitant]
  5. LOTREL [Concomitant]
  6. AUGMENTIN [Concomitant]

REACTIONS (5)
  - ARRHYTHMIA [None]
  - CONGESTIVE CARDIOMYOPATHY [None]
  - FATIGUE [None]
  - INJURY [None]
  - TACHYCARDIA [None]
